FAERS Safety Report 17006534 (Version 1)
Quarter: 2019Q4

REPORT INFORMATION
  Report Type: Spontaneous
  Country: US (occurrence: US)
  Receive Date: 20190927
  Receipt Date: 20190927
  Transmission Date: 20200122
  Serious: No
  Sender: FDA-Public Use
  Company Number: None

PATIENT
  Age: 61 Year
  Sex: Male

DRUGS (1)
  1. SUTENT [Suspect]
     Active Substance: SUNITINIB MALATE
     Route: 048
     Dates: start: 201803

REACTIONS (5)
  - Blood pressure increased [None]
  - Diarrhoea [None]
  - Gastric disorder [None]
  - Palmar-plantar erythrodysaesthesia syndrome [None]
  - Taste disorder [None]

NARRATIVE: CASE EVENT DATE: 20190927
